FAERS Safety Report 23398851 (Version 4)
Quarter: 2025Q4

REPORT INFORMATION
  Report Type: Spontaneous
  Country: EU (occurrence: EU)
  Receive Date: 20240112
  Receipt Date: 20251208
  Transmission Date: 20260118
  Serious: Yes (Other)
  Sender: SANDOZ
  Company Number: EU-002147023-NVSC2021DE308887

PATIENT
  Age: 77 Year
  Sex: Male
  Weight: 77 kg

DRUGS (329)
  1. ASPIRIN CALCIUM [Suspect]
     Active Substance: ASPIRIN CALCIUM
     Indication: Product used for unknown indication
     Dosage: UNK
     Route: 065
  2. ASPIRIN CALCIUM [Suspect]
     Active Substance: ASPIRIN CALCIUM
     Dosage: UNK, STRENGTH: 500) BID (1-0-1)
     Route: 065
  3. IBUPROFEN [Suspect]
     Active Substance: IBUPROFEN
     Dosage: UNK UNK, UNKNOWN FREQ.
     Route: 065
  4. IBUPROFEN [Suspect]
     Active Substance: IBUPROFEN
     Dosage: UNK UNK, UNKNOWN FREQ.
     Route: 065
  5. IBUPROFEN [Suspect]
     Active Substance: IBUPROFEN
     Indication: Product used for unknown indication
     Dosage: UNK, UNKNOWN FREQ. (PM)
     Route: 065
  6. IBUPROFEN [Suspect]
     Active Substance: IBUPROFEN
     Dosage: UNK, UNKNOWN FREQ. (PM)
     Route: 065
  7. IBUPROFEN [Suspect]
     Active Substance: IBUPROFEN
     Dosage: UNK, UNKNOWN FREQ. (PM)
     Route: 065
  8. ASPIRIN [Suspect]
     Active Substance: ASPIRIN
     Indication: Product used for unknown indication
     Dosage: (STRENGTH: 100)
     Route: 065
  9. ASPIRIN [Suspect]
     Active Substance: ASPIRIN
     Indication: Product used for unknown indication
     Dosage: UNK (STRENGTH: 100)
     Route: 065
  10. ASPIRIN [Suspect]
     Active Substance: ASPIRIN
     Dosage: UNK UNK, UNKNOWN (STRENGTH: 100)
     Route: 065
  11. ASPIRIN [Suspect]
     Active Substance: ASPIRIN
     Dosage: UNK UNK, UNKNOWN (STRENGTH: 100)
     Route: 065
  12. ASPIRIN [Suspect]
     Active Substance: ASPIRIN
     Dosage: UNK UNK, UNKNOWN FREQ.(UNK UNK,  UNKNOWN (STRENGTH: 100))
     Route: 065
  13. ASPIRIN [Suspect]
     Active Substance: ASPIRIN
     Dosage: UNK UNK, UNKNOWN FREQ.(UNK UNK,  UNKNOWN (STRENGTH: 100))
     Route: 065
  14. ASPIRIN [Suspect]
     Active Substance: ASPIRIN
     Dosage: UNK UNK, UNKNOWN FREQ.(UNK UNK,  UNKNOWN (STRENGTH: 100))
     Route: 065
  15. ASPIRIN [Suspect]
     Active Substance: ASPIRIN
     Dosage: UNK UNK, UNKNOWN FREQ.(UNK UNK,  UNKNOWN (STRENGTH: 100))
     Route: 065
  16. ASPIRIN [Suspect]
     Active Substance: ASPIRIN
     Dosage: UNK UNK, UNKNOWN FREQ.(UNK UNK,  UNKNOWN (STRENGTH: 100))
     Route: 065
  17. ASPIRIN [Suspect]
     Active Substance: ASPIRIN
     Dosage: UNK UNK, UNKNOWN FREQ.(UNK UNK,  UNKNOWN (STRENGTH: 100))
     Route: 065
  18. ASPIRIN [Suspect]
     Active Substance: ASPIRIN
     Dosage: UNK UNK, UNKNOWN FREQ.(UNK UNK,  UNKNOWN (STRENGTH: 100))
     Route: 065
  19. ATROVENT [Suspect]
     Active Substance: IPRATROPIUM BROMIDE
     Dosage: ROUTE: INHALATION USE
     Route: 055
  20. ATROVENT [Suspect]
     Active Substance: IPRATROPIUM BROMIDE
     Indication: Chest discomfort
     Dosage: UNK
     Route: 065
  21. ATROVENT [Suspect]
     Active Substance: IPRATROPIUM BROMIDE
     Indication: Cough
     Dosage: UNK
     Route: 065
  22. ATROVENT [Suspect]
     Active Substance: IPRATROPIUM BROMIDE
     Indication: Cough
     Dosage: UNK
     Route: 065
  23. ATROVENT [Suspect]
     Active Substance: IPRATROPIUM BROMIDE
     Indication: Dysphonia
     Dosage: UNK
     Route: 065
  24. ATROVENT [Suspect]
     Active Substance: IPRATROPIUM BROMIDE
     Indication: Dyspnoea
     Dosage: UNK
     Route: 065
  25. ATROVENT [Suspect]
     Active Substance: IPRATROPIUM BROMIDE
     Indication: Nasopharyngitis
     Dosage: UNK
     Route: 065
  26. ATROVENT [Suspect]
     Active Substance: IPRATROPIUM BROMIDE
     Indication: Pneumothorax
     Dosage: UNK
     Route: 065
  27. ATROVENT [Suspect]
     Active Substance: IPRATROPIUM BROMIDE
     Indication: Pneumothorax
     Dosage: UNK
     Route: 065
  28. ATROVENT [Suspect]
     Active Substance: IPRATROPIUM BROMIDE
     Indication: Secretion discharge
     Dosage: UNK
     Route: 065
  29. ATROVENT [Suspect]
     Active Substance: IPRATROPIUM BROMIDE
     Indication: Secretion discharge
     Dosage: UNK
     Route: 065
  30. ATROVENT [Suspect]
     Active Substance: IPRATROPIUM BROMIDE
     Dosage: UNK
     Route: 065
  31. ATROVENT [Suspect]
     Active Substance: IPRATROPIUM BROMIDE
     Dosage: UNK
     Route: 065
  32. ATROVENT [Suspect]
     Active Substance: IPRATROPIUM BROMIDE
     Dosage: UNK
     Route: 065
  33. ATROVENT [Suspect]
     Active Substance: IPRATROPIUM BROMIDE
     Indication: Nasopharyngitis
     Dosage: UNK UNK, UNKNOWN
     Route: 055
     Dates: start: 2018, end: 2018
  34. ATROVENT [Suspect]
     Active Substance: IPRATROPIUM BROMIDE
     Dosage: UNK UNK, UNKNOWN
     Route: 065
  35. ATROVENT [Suspect]
     Active Substance: IPRATROPIUM BROMIDE
     Dosage: UNK UNK, UNKNOWN
     Route: 065
  36. ATROVENT [Suspect]
     Active Substance: IPRATROPIUM BROMIDE
     Dosage: UNK UNK, UNKNOWN
     Route: 065
  37. ATROVENT [Suspect]
     Active Substance: IPRATROPIUM BROMIDE
     Dosage: UNK UNK, UNKNOWN
     Route: 065
  38. ATROVENT [Suspect]
     Active Substance: IPRATROPIUM BROMIDE
     Dosage: UNK UNK, UNKNOWN
     Route: 065
  39. ATROVENT [Suspect]
     Active Substance: IPRATROPIUM BROMIDE
     Dosage: UNK UNK, UNKNOWN
     Route: 065
  40. ATROVENT [Suspect]
     Active Substance: IPRATROPIUM BROMIDE
     Dosage: UNK UNK, UNKNOWN
     Route: 065
  41. ATROVENT [Suspect]
     Active Substance: IPRATROPIUM BROMIDE
     Dosage: UNK UNK, UNKNOWN
     Route: 065
  42. ATROVENT [Suspect]
     Active Substance: IPRATROPIUM BROMIDE
     Dosage: UNK, ROUTE: RESPIRATORY (INHALATION)
     Route: 065
  43. BIOTIN [Suspect]
     Active Substance: BIOTIN
     Dosage: 1 DF, QD
     Route: 065
  44. BIOTIN [Suspect]
     Active Substance: BIOTIN
     Dosage: 1 DOSAGE FORM
     Route: 065
  45. BIOTIN [Suspect]
     Active Substance: BIOTIN
     Dosage: 1 DOSAGE FORM, QD
     Route: 065
  46. BIOTIN [Suspect]
     Active Substance: BIOTIN
     Indication: Product used for unknown indication
     Dosage: 1 DOSAGE FORM, DAILY (STRENGTH:100)
     Route: 065
  47. BIOTIN [Suspect]
     Active Substance: BIOTIN
     Dosage: UNK UNK, DAILY
     Route: 065
  48. BIOTIN [Suspect]
     Active Substance: BIOTIN
     Indication: Product used for unknown indication
     Dosage: UNK, QD (1-0-0)
     Route: 065
  49. BIOTIN [Suspect]
     Active Substance: BIOTIN
     Dosage: 1 DF, ONCE DAILY (STRENGTH 100)
     Route: 065
  50. BIOTIN [Suspect]
     Active Substance: BIOTIN
     Dosage: 1 DOSAGE FORM, DAILY
     Route: 065
  51. BISOPROLOL FUMARATE [Suspect]
     Active Substance: BISOPROLOL FUMARATE
     Dosage: 1 DF, QD
     Route: 065
     Dates: start: 20201210
  52. BISOPROLOL FUMARATE [Suspect]
     Active Substance: BISOPROLOL FUMARATE
     Dosage: 1 DF, QD
     Route: 065
     Dates: start: 20201210
  53. BISOPROLOL FUMARATE [Suspect]
     Active Substance: BISOPROLOL FUMARATE
     Dosage: 1 DOSAGE FORM, QW, ROUTE: RESPIRATORY  (INHALATION)
     Route: 065
     Dates: start: 20201210
  54. BISOPROLOL FUMARATE [Suspect]
     Active Substance: BISOPROLOL FUMARATE
     Dosage: UNK UNK, UNKNOWN FREQ.
     Route: 065
  55. BISOPROLOL FUMARATE [Suspect]
     Active Substance: BISOPROLOL FUMARATE
     Dosage: UNK, QD
     Route: 065
  56. BISOPROLOL FUMARATE [Suspect]
     Active Substance: BISOPROLOL FUMARATE
     Indication: Product used for unknown indication
     Dosage: UNK, QD (1-0-0)
     Route: 065
     Dates: start: 20201210
  57. BISOPROLOL FUMARATE [Suspect]
     Active Substance: BISOPROLOL FUMARATE
     Dosage: UNK UNK, UNKNOWN FREQ.
     Route: 065
  58. CALCIUM [Suspect]
     Active Substance: CALCIUM
     Dosage: (STRENGTH: 500) BID (1-0-1)
     Route: 065
  59. CALCIUM [Suspect]
     Active Substance: CALCIUM
     Dosage: UNK, QD
     Route: 065
  60. CALCIUM [Suspect]
     Active Substance: CALCIUM
     Dosage: UNK, Q12H (STRENGTH:500 MG)
     Route: 065
  61. CALCIUM [Suspect]
     Active Substance: CALCIUM
     Dosage: UNK UNK, BID (STRENGTH: 500) BID (1-0-1)
     Route: 065
  62. CALCIUM [Suspect]
     Active Substance: CALCIUM
     Indication: Product used for unknown indication
     Dosage: UNK, BID (STRENGTH: 500) BID (1-0-1)
     Route: 065
  63. CALCIUM CARBONATE [Suspect]
     Active Substance: CALCIUM CARBONATE
     Indication: Product used for unknown indication
     Dosage: 500 MG, BID
     Route: 065
  64. CALCIUM CARBONATE [Suspect]
     Active Substance: CALCIUM CARBONATE
     Dosage: 1000 MG
     Route: 065
  65. CALCIUM CARBONATE [Suspect]
     Active Substance: CALCIUM CARBONATE
     Indication: Product used for unknown indication
     Dosage: 1000 MG, UNKNOWN
     Route: 065
  66. CALCIUM CARBONATE [Suspect]
     Active Substance: CALCIUM CARBONATE
     Dosage: UNK UNK, UNKNOWN FREQ. (UNK (1 IN 1.5  DAY UNK, CALCIUM HEXAL (CALCIUM CARBONATE))
     Route: 065
  67. CALCIUM CARBONATE [Suspect]
     Active Substance: CALCIUM CARBONATE
     Dosage: 500 MG
     Route: 065
  68. CLOPIDOGREL [Suspect]
     Active Substance: CLOPIDOGREL BISULFATE
     Indication: Product used for unknown indication
     Dosage: UNK, DAILY  BID (1-0-1)
     Route: 065
     Dates: start: 20201210
  69. CLOPIDOGREL [Suspect]
     Active Substance: CLOPIDOGREL BISULFATE
     Dosage: UNK (UNK, QD, (DAILY BID (1-0-1)))
     Route: 065
  70. CLOPIDOGREL [Suspect]
     Active Substance: CLOPIDOGREL BISULFATE
     Dosage: UNK, QD
     Route: 065
     Dates: start: 20201210
  71. CALCIUM PANTOTHENATE [Suspect]
     Active Substance: CALCIUM PANTOTHENATE
     Indication: Product used for unknown indication
     Dosage: UNK UNK, EVERY 8 HOURS (UNK UNK, EVERY 8 HRS)
     Route: 065
  72. CALCIUM PANTOTHENATE [Suspect]
     Active Substance: CALCIUM PANTOTHENATE
     Indication: Product used for unknown indication
     Dosage: UNK UNK, EVERY 8 HOURS (UNK UNK, EVERY 8 HRS)
     Route: 065
  73. CALCIUM PANTOTHENATE [Suspect]
     Active Substance: CALCIUM PANTOTHENATE
     Dosage: UNK UNK, EVERY 8 HOURS (UNK UNK, EVERY 8 HRS)
     Route: 065
  74. CALCIUM PANTOTHENATE [Suspect]
     Active Substance: CALCIUM PANTOTHENATE
     Dosage: UNK UNK, EVERY 8 HRS
     Route: 065
  75. MINERALS\VITAMINS [Suspect]
     Active Substance: MINERALS\VITAMINS
     Dosage: 1000 MG(, UNKNOWN BID (STRENGTH: 500)  BID (1-0-1), EFFERVESCENT TABLET)
     Route: 065
  76. MINERALS\VITAMINS [Suspect]
     Active Substance: MINERALS\VITAMINS
     Dosage: 1000 MG, DAILY 1-0-1
     Route: 065
  77. MINERALS\VITAMINS [Suspect]
     Active Substance: MINERALS\VITAMINS
     Dosage: 500 MG, ROUTE: UNKNOWN
     Route: 065
  78. MINERALS\VITAMINS [Suspect]
     Active Substance: MINERALS\VITAMINS
     Indication: Product used for unknown indication
     Dosage: (STRENGTH: 500) BID (1-0-1)
     Route: 065
  79. MINERALS\VITAMINS [Suspect]
     Active Substance: MINERALS\VITAMINS
     Dosage: UNK, QD
     Route: 065
  80. MINERALS\VITAMINS [Suspect]
     Active Substance: MINERALS\VITAMINS
     Dosage: UNK, Q12H (STRENGTH:500 MG)
     Route: 065
  81. MINERALS\VITAMINS [Suspect]
     Active Substance: MINERALS\VITAMINS
     Dosage: UNK UNK, BID (STRENGTH: 500) BID (1-0- 1)
     Route: 065
  82. MINERALS\VITAMINS [Suspect]
     Active Substance: MINERALS\VITAMINS
     Indication: Product used for unknown indication
     Dosage: UNK, BID (STRENGTH: 500) BID (1-0-1)
     Route: 065
  83. COLESEVELAM HYDROCHLORIDE [Suspect]
     Active Substance: COLESEVELAM HYDROCHLORIDE
     Indication: Product used for unknown indication
     Dosage: UNK
     Route: 065
  84. COLESEVELAM HYDROCHLORIDE [Suspect]
     Active Substance: COLESEVELAM HYDROCHLORIDE
     Indication: Product used for unknown indication
     Dosage: UNK
     Route: 065
  85. COLESEVELAM HYDROCHLORIDE [Suspect]
     Active Substance: COLESEVELAM HYDROCHLORIDE
     Dosage: UNK
     Route: 065
  86. COLESEVELAM HYDROCHLORIDE [Suspect]
     Active Substance: COLESEVELAM HYDROCHLORIDE
     Dosage: UNK (UNK UNK, UNKNOWN FREQ.)
     Route: 065
  87. COLESEVELAM HYDROCHLORIDE [Suspect]
     Active Substance: COLESEVELAM HYDROCHLORIDE
     Dosage: UNK UNK, UNKNOWN FREQ
     Route: 065
  88. COLESEVELAM HYDROCHLORIDE [Suspect]
     Active Substance: COLESEVELAM HYDROCHLORIDE
     Dosage: UNK UNK, UNKNOWN FREQ.
     Route: 065
  89. COLESEVELAM HYDROCHLORIDE [Suspect]
     Active Substance: COLESEVELAM HYDROCHLORIDE
     Dosage: UNK UNK, UNKNOWN FREQ.
     Route: 065
  90. COLESEVELAM HYDROCHLORIDE [Suspect]
     Active Substance: COLESEVELAM HYDROCHLORIDE
     Dosage: UNK UNK, UNKNOWN FREQ.
     Route: 065
  91. COLESEVELAM HYDROCHLORIDE [Suspect]
     Active Substance: COLESEVELAM HYDROCHLORIDE
     Dosage: UNK UNK, UNKNOWN FREQ.(#1)
     Route: 065
  92. COLESEVELAM HYDROCHLORIDE [Suspect]
     Active Substance: COLESEVELAM HYDROCHLORIDE
     Dosage: UNK, UNKNOWN FREQ.
     Route: 065
  93. CIALIS [Suspect]
     Active Substance: TADALAFIL
     Indication: Product used for unknown indication
     Dosage: UNK
     Route: 065
  94. CIALIS [Suspect]
     Active Substance: TADALAFIL
     Indication: Product used for unknown indication
     Dosage: UNK
     Route: 065
  95. CIALIS [Suspect]
     Active Substance: TADALAFIL
     Dosage: UNK
     Route: 065
  96. CIALIS [Suspect]
     Active Substance: TADALAFIL
     Dosage: UNK UNK, UNKNOWN FREQ.
     Route: 065
  97. CRESTOR [Suspect]
     Active Substance: ROSUVASTATIN CALCIUM
     Indication: Product used for unknown indication
     Dosage: UNK
     Route: 065
  98. CRESTOR [Suspect]
     Active Substance: ROSUVASTATIN CALCIUM
     Indication: Product used for unknown indication
     Dosage: UNK
     Route: 065
  99. CRESTOR [Suspect]
     Active Substance: ROSUVASTATIN CALCIUM
     Dosage: UNK
     Route: 065
  100. CRESTOR [Suspect]
     Active Substance: ROSUVASTATIN CALCIUM
     Dosage: UNK
     Route: 065
  101. CRESTOR [Suspect]
     Active Substance: ROSUVASTATIN CALCIUM
     Dosage: UNK UNK, UNKNOWN FREQ.
     Route: 065
  102. DICLOFENAC DIETHYLAMINE [Suspect]
     Active Substance: DICLOFENAC DIETHYLAMINE
     Indication: Product used for unknown indication
     Dosage: UNK
     Route: 065
  103. DICLOFENAC DIETHYLAMINE [Suspect]
     Active Substance: DICLOFENAC DIETHYLAMINE
     Dosage: UNK UNK, UNKNOWN FREQ
     Route: 065
  104. DICLOFENAC DIETHYLAMINE [Suspect]
     Active Substance: DICLOFENAC DIETHYLAMINE
     Dosage: UNK UNK, UNKNOWN FREQ
     Route: 065
  105. .ALPHA.-TOCOPHEROL ACETATE, DL- [Suspect]
     Active Substance: .ALPHA.-TOCOPHEROL ACETATE, DL-
     Indication: Product used for unknown indication
     Dosage: 2000 INTERNATIONAL UNIT, WEEKLY (1/W)
     Route: 065
  106. .ALPHA.-TOCOPHEROL ACETATE, DL- [Suspect]
     Active Substance: .ALPHA.-TOCOPHEROL ACETATE, DL-
     Dosage: 2000 INTERNATIONAL UNIT, WEEKLY (1/W)
     Route: 065
  107. MOMETASONE [Suspect]
     Active Substance: MOMETASONE
     Dosage: UNK (AS NEEDED)
     Route: 065
  108. MOMETASONE [Suspect]
     Active Substance: MOMETASONE
     Dosage: UNK UNK, AS NEEDED
     Route: 065
  109. MOMETASONE [Suspect]
     Active Substance: MOMETASONE
     Dosage: UNK UNK, UNKNOWN
     Route: 065
  110. MOMETASONE [Suspect]
     Active Substance: MOMETASONE
     Indication: Product used for unknown indication
     Dosage: UNK, PRN
     Route: 065
  111. MOMETASONE [Suspect]
     Active Substance: MOMETASONE
     Indication: Product used for unknown indication
     Dosage: AS NEEDED
     Route: 065
  112. ERGOCALCIFEROL [Suspect]
     Active Substance: ERGOCALCIFEROL
     Indication: Product used for unknown indication
     Dosage: 2000 IU, QW
     Route: 065
  113. IBUPROFEN [Suspect]
     Active Substance: IBUPROFEN
     Indication: Product used for unknown indication
     Dosage: UNK (UNK UNK, AS NEEDED (PRN))
     Route: 065
  114. IBUPROFEN [Suspect]
     Active Substance: IBUPROFEN
     Indication: Product used for unknown indication
     Dosage: UNK UNK, AS NEEDED (PRN)
     Route: 065
  115. IBUPROFEN [Suspect]
     Active Substance: IBUPROFEN
     Dosage: UNK UNK, AS NEEDED (PRN)
     Route: 065
  116. IBUPROFEN [Suspect]
     Active Substance: IBUPROFEN
     Dosage: UNK UNK, AS NEEDED (PRN)
     Route: 065
  117. MAGNESIUM OROTATE [Suspect]
     Active Substance: MAGNESIUM OROTATE
     Dosage: UNK UNK, ONCE DAILY
     Route: 065
  118. MAGNESIUM OROTATE [Suspect]
     Active Substance: MAGNESIUM OROTATE
     Indication: Product used for unknown indication
     Dosage: (3-2-3)
     Route: 065
  119. MAGNESIUM OROTATE [Suspect]
     Active Substance: MAGNESIUM OROTATE
     Dosage: UNK UNK, DAILY (TID (3-2-3))
     Route: 065
  120. MAGNESIUM OROTATE [Suspect]
     Active Substance: MAGNESIUM OROTATE
     Dosage: UNK UNK, UNKNOWN FREQ.(3-2-3)
     Route: 065
  121. MAGNESIUM OROTATE [Suspect]
     Active Substance: MAGNESIUM OROTATE
     Indication: Product used for unknown indication
     Dosage: UNK, TID (3-2-3)
     Route: 065
  122. MAGNESIUM OROTATE [Suspect]
     Active Substance: MAGNESIUM OROTATE
     Dosage: UNK, DAILY
     Route: 065
  123. MAGNESIUM OROTATE [Suspect]
     Active Substance: MAGNESIUM OROTATE
     Dosage: UNK, TID (TID (3-2-3)
     Route: 065
  124. MAGNESIUM OROTATE [Suspect]
     Active Substance: MAGNESIUM OROTATE
     Indication: Product used for unknown indication
     Dosage: UNK
     Route: 065
  125. MOMETASONE FUROATE [Suspect]
     Active Substance: MOMETASONE FUROATE
     Dosage: 2 DOSAGE FORM, DAILY(1 IN 0.5 DAY)
     Route: 065
  126. MOMETASONE FUROATE [Suspect]
     Active Substance: MOMETASONE FUROATE
     Dosage: 2 DOSAGE FORM, Q12H
     Route: 065
  127. MOMETASONE FUROATE [Suspect]
     Active Substance: MOMETASONE FUROATE
     Dosage: 2 DF, TWICE DAILY (2 DOSAGE FORM, BID (2  PUFF(S), BID 1-0-1)/AS NEEDED (2 PUFFS)
     Route: 065
  128. MOMETASONE FUROATE [Suspect]
     Active Substance: MOMETASONE FUROATE
     Dosage: 2 DOSAGE FORM, BID (2 PUFF(S), BID 1-0-1)
     Route: 065
  129. MOMETASONE FUROATE [Suspect]
     Active Substance: MOMETASONE FUROATE
     Indication: Product used for unknown indication
     Dosage: 2 PUFF(S), BID (2 PUFFS (1-0-1))
     Route: 065
  130. MOMETASONE FUROATE [Suspect]
     Active Substance: MOMETASONE FUROATE
     Dosage: 2 PUFF(S), BID (2 PUFFS (1-0-1))
     Route: 065
  131. MOMETASONE FUROATE [Suspect]
     Active Substance: MOMETASONE FUROATE
     Indication: Product used for unknown indication
     Dosage: 2 PUFFS (1-0-1)
     Route: 065
  132. MOMETASONE FUROATE [Suspect]
     Active Substance: MOMETASONE FUROATE
     Dosage: UNK UNK, DAILY 2 PUFF(S), BID
     Route: 065
  133. MOMETASONE FUROATE [Suspect]
     Active Substance: MOMETASONE FUROATE
     Dosage: UNK UNK, DAILY 2 PUFF(S), BID 1-0-1
     Route: 065
  134. MOMETASONE FUROATE [Suspect]
     Active Substance: MOMETASONE FUROATE
     Dosage: 2 PUFFS BID
     Route: 065
  135. MOMETASONE FUROATE [Suspect]
     Active Substance: MOMETASONE FUROATE
     Dosage: 2 DOSAGE FORM, QD(2 DF, QD,(2 DOSAGE  FORM, DAILY(1 IN 0.5 DAY)
     Route: 065
  136. MOMETASONE FUROATE [Suspect]
     Active Substance: MOMETASONE FUROATE
     Indication: Product used for unknown indication
     Dosage: 2 PUFFS BID
     Route: 065
  137. MOMETASONE FUROATE [Suspect]
     Active Substance: MOMETASONE FUROATE
     Dosage: UNK UNK, EVERY 12 HOURS
     Route: 065
  138. MOMETASONE FUROATE [Suspect]
     Active Substance: MOMETASONE FUROATE
     Dosage: UNK UNK, UNKNOWN
     Route: 065
  139. MOMETASONE FUROATE [Suspect]
     Active Substance: MOMETASONE FUROATE
     Dosage: UNK UNK, UNKNOWN FREQ
     Route: 065
  140. MOMETASONE FUROATE [Suspect]
     Active Substance: MOMETASONE FUROATE
     Dosage: UNK UNK, UNKNOWN FREQ.
     Route: 065
  141. MOMETASONE FUROATE [Suspect]
     Active Substance: MOMETASONE FUROATE
     Dosage: UNK UNK, UNKNOWN FREQ.
     Route: 065
  142. MOMETASONE FUROATE [Suspect]
     Active Substance: MOMETASONE FUROATE
     Indication: Product used for unknown indication
     Route: 065
  143. AMBROXOL HYDROCHLORIDE [Suspect]
     Active Substance: AMBROXOL HYDROCHLORIDE
     Indication: Product used for unknown indication
     Dosage: UNK
     Route: 055
  144. AMBROXOL HYDROCHLORIDE [Suspect]
     Active Substance: AMBROXOL HYDROCHLORIDE
     Indication: Product used for unknown indication
     Dosage: UNK
     Route: 065
  145. AMBROXOL HYDROCHLORIDE [Suspect]
     Active Substance: AMBROXOL HYDROCHLORIDE
     Dosage: UNK UNK, UNKNOWN FREQ
     Route: 065
  146. AMBROXOL HYDROCHLORIDE [Suspect]
     Active Substance: AMBROXOL HYDROCHLORIDE
     Dosage: UNK UNK, UNKNOWN FREQ
     Route: 065
  147. AMBROXOL HYDROCHLORIDE [Suspect]
     Active Substance: AMBROXOL HYDROCHLORIDE
     Dosage: UNK UNK, UNKNOWN FREQ
     Route: 065
  148. SOAP [Suspect]
     Active Substance: SOAP
     Indication: Product used for unknown indication
     Dosage: 10 GTT DROPS, QD
     Route: 065
  149. SOAP [Suspect]
     Active Substance: SOAP
     Dosage: 10 GTT DROPS, QD
     Route: 065
  150. SOAP [Suspect]
     Active Substance: SOAP
     Indication: Asthma
     Dosage: UNK, QD
     Route: 065
  151. SOAP [Suspect]
     Active Substance: SOAP
     Indication: Pneumothorax
     Dosage: UNK, QD
     Route: 065
  152. SOAP [Suspect]
     Active Substance: SOAP
     Indication: Secretion discharge
     Dosage: UNK, Q3W
     Route: 065
  153. SOAP [Suspect]
     Active Substance: SOAP
     Indication: Nasopharyngitis
     Dosage: TID CUTANEOUS EMULSION
     Route: 065
  154. SOAP [Suspect]
     Active Substance: SOAP
     Indication: Product used for unknown indication
     Dosage: UNK
     Route: 065
  155. SOAP [Suspect]
     Active Substance: SOAP
     Indication: Cough
     Dosage: UNK UNK, ONCE DAILY(10 GTT DROPS, QD)
     Route: 065
  156. SOAP [Suspect]
     Active Substance: SOAP
     Indication: Bronchitis
     Dosage: UNK UNK, THRICE DAILY (CUTANEOUS  EMULSION)
     Route: 065
  157. SOAP [Suspect]
     Active Substance: SOAP
     Indication: Dysphonia
     Dosage: UNK, UNKNOWN, SHAMPO
     Route: 065
  158. SOAP [Suspect]
     Active Substance: SOAP
     Indication: Dyspnoea
     Dosage: CUTANEOUS EMULSION
     Route: 065
  159. MAGNESIUM ASPARTATE\POTASSIUM ASPARTATE [Suspect]
     Active Substance: MAGNESIUM ASPARTATE\POTASSIUM ASPARTATE
     Indication: Product used for unknown indication
     Dosage: UNK UNK, UNKNOWN FREQ.
     Route: 065
  160. MAGNESIUM ASPARTATE\POTASSIUM ASPARTATE [Suspect]
     Active Substance: MAGNESIUM ASPARTATE\POTASSIUM ASPARTATE
     Dosage: UNK UNK, UNKNOWN FREQ.
     Route: 065
  161. PRALUENT [Suspect]
     Active Substance: ALIROCUMAB
     Indication: Product used for unknown indication
     Dosage: UNK (STRENGTH: 75)
     Route: 065
  162. PRALUENT [Suspect]
     Active Substance: ALIROCUMAB
     Dosage: UNK (STRENGTH: 75)
     Route: 065
  163. PRALUENT [Suspect]
     Active Substance: ALIROCUMAB
     Indication: Product used for unknown indication
     Dosage: UNK UNK, UNKNOWN 75 UNK
     Route: 065
  164. PRALUENT [Suspect]
     Active Substance: ALIROCUMAB
     Dosage: UNK UNK, UNKNOWN FREQ. (75 UNK)
     Route: 065
  165. CALCIUM PANTOTHENATE [Suspect]
     Active Substance: CALCIUM PANTOTHENATE
     Indication: Product used for unknown indication
     Dosage: (2-0-1) TID
     Route: 065
  166. CALCIUM PANTOTHENATE [Suspect]
     Active Substance: CALCIUM PANTOTHENATE
     Indication: Product used for unknown indication
     Dosage: UNK
     Route: 065
  167. CALCIUM PANTOTHENATE [Suspect]
     Active Substance: CALCIUM PANTOTHENATE
     Dosage: UNK (EVERY 0.3 DAY)
     Route: 065
  168. CALCIUM PANTOTHENATE [Suspect]
     Active Substance: CALCIUM PANTOTHENATE
     Dosage: UNK (EVERY 0.3 DAY)
     Route: 065
  169. CALCIUM PANTOTHENATE [Suspect]
     Active Substance: CALCIUM PANTOTHENATE
     Dosage: UNK UNK, QD (UNKNOWN (2-0-1) TID)
     Route: 065
  170. CALCIUM PANTOTHENATE [Suspect]
     Active Substance: CALCIUM PANTOTHENATE
     Dosage: UNK UNK, THRICE DAILY ((2-0-1) TID)
     Route: 065
  171. CALCIUM PANTOTHENATE [Suspect]
     Active Substance: CALCIUM PANTOTHENATE
     Dosage: UNK, EVERY 8 HRS
     Route: 065
  172. CALCIUM PANTOTHENATE [Suspect]
     Active Substance: CALCIUM PANTOTHENATE
     Indication: Product use in unapproved indication
     Dosage: UNK, EVERY 8 HRS
     Route: 065
  173. CALCIUM PANTOTHENATE [Suspect]
     Active Substance: CALCIUM PANTOTHENATE
     Indication: Product used for unknown indication
     Dosage: UNK, EVERY 8 HRS
     Route: 065
  174. HERBALS [Suspect]
     Active Substance: HERBALS
     Indication: Product used for unknown indication
     Dosage: UNK
     Route: 065
  175. HERBALS [Suspect]
     Active Substance: HERBALS
     Indication: Product used for unknown indication
     Dosage: UNK
     Route: 065
  176. HERBALS [Suspect]
     Active Substance: HERBALS
     Dosage: UNK
     Route: 065
  177. HERBALS [Suspect]
     Active Substance: HERBALS
     Dosage: UNK
     Route: 065
  178. HERBALS [Suspect]
     Active Substance: HERBALS
     Dosage: UNK
     Route: 065
  179. HERBALS [Suspect]
     Active Substance: HERBALS
     Dosage: UNK UNK, UNKNOWN FREQ.
     Route: 065
  180. HERBALS [Suspect]
     Active Substance: HERBALS
     Dosage: UNK UNK, UNKNOWN FREQ.
     Route: 065
  181. ROSUVASTATIN CALCIUM [Suspect]
     Active Substance: ROSUVASTATIN CALCIUM
     Indication: Product used for unknown indication
     Dosage: UNK
     Route: 065
  182. ROSUVASTATIN CALCIUM [Suspect]
     Active Substance: ROSUVASTATIN CALCIUM
     Indication: Product used for unknown indication
  183. ALBUTEROL [Suspect]
     Active Substance: ALBUTEROL
     Indication: Nasopharyngitis
     Dosage: UNK UNK, UNKNOWN
     Route: 055
     Dates: start: 2018, end: 2018
  184. ALBUTEROL [Suspect]
     Active Substance: ALBUTEROL
     Indication: Cough
  185. ALBUTEROL [Suspect]
     Active Substance: ALBUTEROL
     Indication: Dysphonia
  186. ALBUTEROL [Suspect]
     Active Substance: ALBUTEROL
     Indication: Dyspnoea
  187. ALBUTEROL [Suspect]
     Active Substance: ALBUTEROL
     Indication: Pneumothorax
  188. ALBUTEROL [Suspect]
     Active Substance: ALBUTEROL
     Indication: Secretion discharge
  189. ALBUTEROL [Suspect]
     Active Substance: ALBUTEROL
     Indication: Secretion discharge
  190. ALBUTEROL SULFATE [Suspect]
     Active Substance: ALBUTEROL SULFATE
     Indication: Secretion discharge
     Dosage: UNK, ROUTE: RESPIRATORY (INHALATION)
     Route: 065
  191. SALMETEROL XINAFOATE [Suspect]
     Active Substance: SALMETEROL XINAFOATE
     Indication: Dyspnoea
     Dosage: UNK
     Route: 055
     Dates: start: 2018, end: 2018
  192. SALMETEROL XINAFOATE [Suspect]
     Active Substance: SALMETEROL XINAFOATE
     Indication: Chest discomfort
  193. SALMETEROL XINAFOATE [Suspect]
     Active Substance: SALMETEROL XINAFOATE
     Indication: Cough
  194. SALMETEROL XINAFOATE [Suspect]
     Active Substance: SALMETEROL XINAFOATE
     Indication: Dysphonia
  195. SALMETEROL XINAFOATE [Suspect]
     Active Substance: SALMETEROL XINAFOATE
     Indication: Nasopharyngitis
  196. SALMETEROL XINAFOATE [Suspect]
     Active Substance: SALMETEROL XINAFOATE
     Indication: Secretion discharge
  197. SALMETEROL XINAFOATE [Suspect]
     Active Substance: SALMETEROL XINAFOATE
     Indication: Secretion discharge
  198. ALBUTEROL SULFATE [Suspect]
     Active Substance: ALBUTEROL SULFATE
     Indication: Chest discomfort
     Dosage: UNK
     Route: 065
  199. ALBUTEROL SULFATE [Suspect]
     Active Substance: ALBUTEROL SULFATE
     Indication: Chest discomfort
     Dosage: UNK
     Route: 065
  200. ALBUTEROL SULFATE [Suspect]
     Active Substance: ALBUTEROL SULFATE
     Indication: Cough
     Dosage: UNK
     Route: 065
  201. ALBUTEROL SULFATE [Suspect]
     Active Substance: ALBUTEROL SULFATE
     Indication: Cough
     Dosage: UNK
     Route: 065
  202. ALBUTEROL SULFATE [Suspect]
     Active Substance: ALBUTEROL SULFATE
     Indication: Dysphonia
     Dosage: UNK
     Route: 065
  203. ALBUTEROL SULFATE [Suspect]
     Active Substance: ALBUTEROL SULFATE
     Indication: Dysphonia
     Dosage: UNK
     Route: 065
  204. ALBUTEROL SULFATE [Suspect]
     Active Substance: ALBUTEROL SULFATE
     Indication: Dyspnoea
     Dosage: UNK
     Route: 065
  205. ALBUTEROL SULFATE [Suspect]
     Active Substance: ALBUTEROL SULFATE
     Indication: Pneumothorax
     Dosage: UNK
     Route: 065
  206. ALBUTEROL SULFATE [Suspect]
     Active Substance: ALBUTEROL SULFATE
     Indication: Pneumothorax
     Dosage: UNK
     Route: 065
  207. ALBUTEROL SULFATE [Suspect]
     Active Substance: ALBUTEROL SULFATE
     Indication: Productive cough
     Dosage: UNK
     Route: 065
  208. ALBUTEROL SULFATE [Suspect]
     Active Substance: ALBUTEROL SULFATE
     Indication: Secretion discharge
     Dosage: UNK
     Route: 065
  209. ALBUTEROL SULFATE [Suspect]
     Active Substance: ALBUTEROL SULFATE
     Indication: Secretion discharge
     Dosage: UNK
     Route: 065
  210. ALBUTEROL SULFATE [Suspect]
     Active Substance: ALBUTEROL SULFATE
     Indication: Secretion discharge
     Dosage: UNK
     Route: 065
  211. ALBUTEROL SULFATE [Suspect]
     Active Substance: ALBUTEROL SULFATE
     Dosage: UNK (UNK UNK, UNKNOWN, INHLAED VIA  SPACER WITH PAEDIATRIC MASK), ROUTE:  RESPIRATORY (INHALATION)
     Route: 065
  212. ALBUTEROL SULFATE [Suspect]
     Active Substance: ALBUTEROL SULFATE
     Dosage: UNK UNK, UNKNOWN, INHLAED VIA SPACER  WITH PAEDIATRIC MAS
     Route: 065
  213. ALBUTEROL SULFATE [Suspect]
     Active Substance: ALBUTEROL SULFATE
     Indication: Nasopharyngitis
     Dosage: UNK UNK, UNKNOWN, INHLAED VIA SPACER WITH PAEDIATRIC MASK
     Route: 065
     Dates: start: 2018, end: 2018
  214. HERBALS\PHENYL SALICYLATE [Suspect]
     Active Substance: HERBALS\PHENYL SALICYLATE
     Dosage: 1 DOSAGE FORM, QD (10 DROPS BID)
     Route: 065
  215. HERBALS\PHENYL SALICYLATE [Suspect]
     Active Substance: HERBALS\PHENYL SALICYLATE
     Indication: Asthma
     Dosage: 10 DRP (10 GTT DROPS)
     Route: 065
  216. HERBALS\PHENYL SALICYLATE [Suspect]
     Active Substance: HERBALS\PHENYL SALICYLATE
     Dosage: 10 DROP (1/12 MILLILITRE) DAILY
     Route: 065
  217. HERBALS\PHENYL SALICYLATE [Suspect]
     Active Substance: HERBALS\PHENYL SALICYLATE
     Dosage: 10 DRP, QD(10 GTT DROPS, QD)
     Route: 065
  218. HERBALS\PHENYL SALICYLATE [Suspect]
     Active Substance: HERBALS\PHENYL SALICYLATE
     Indication: Bronchitis
     Dosage: UNK, BID 10 DROPS BID (1-0-1)
     Route: 065
  219. HERBALS\PHENYL SALICYLATE [Suspect]
     Active Substance: HERBALS\PHENYL SALICYLATE
     Indication: Asthma
     Dosage: 10 DRP, QD
     Route: 065
  220. HERBALS\PHENYL SALICYLATE [Suspect]
     Active Substance: HERBALS\PHENYL SALICYLATE
     Indication: Bronchitis
     Dosage: UNK, QD
     Route: 065
  221. TADALAFIL [Suspect]
     Active Substance: TADALAFIL
     Indication: Product used for unknown indication
     Dosage: UNK
     Route: 065
  222. TADALAFIL [Suspect]
     Active Substance: TADALAFIL
     Dosage: UNK
     Route: 065
  223. TAMSULOSIN [Suspect]
     Active Substance: TAMSULOSIN
     Indication: Product used for unknown indication
     Dosage: UNK
     Route: 065
  224. TAMSULOSIN [Suspect]
     Active Substance: TAMSULOSIN
     Indication: Product used for unknown indication
     Dosage: UNK UNK, UNKNOWN
     Route: 065
  225. TAMSULOSIN [Suspect]
     Active Substance: TAMSULOSIN
     Dosage: UNK UNK, UNKNOWN
     Route: 065
  226. TAMSULOSIN [Suspect]
     Active Substance: TAMSULOSIN
     Dosage: UNK UNK, UNKNOWN FREQ.
     Route: 065
  227. TAMSULOSIN [Suspect]
     Active Substance: TAMSULOSIN
     Dosage: UNK UNK, UNKNOWN FREQ.
     Route: 065
  228. GINKGO [Suspect]
     Active Substance: GINKGO
     Dosage: 500 MG, BID
     Route: 065
  229. GINKGO [Suspect]
     Active Substance: GINKGO
     Dosage: UNK, STRENGTH: 500) BID (1-0-1) BID
     Route: 065
  230. GINKGO [Suspect]
     Active Substance: GINKGO
     Indication: Product used for unknown indication
     Dosage: UNK
     Route: 065
  231. GINKGO [Suspect]
     Active Substance: GINKGO
     Dosage: UNK
     Route: 065
  232. TOCOPHEROL [Suspect]
     Active Substance: TOCOPHEROL
     Indication: Product used for unknown indication
     Dosage: 2000 IU, QW
     Route: 065
  233. MAGNESIUM ASPARTATE\POTASSIUM ASPARTATE [Suspect]
     Active Substance: MAGNESIUM ASPARTATE\POTASSIUM ASPARTATE
     Indication: Product used for unknown indication
     Dosage: UNK
     Route: 065
  234. MAGNESIUM ASPARTATE\POTASSIUM ASPARTATE [Suspect]
     Active Substance: MAGNESIUM ASPARTATE\POTASSIUM ASPARTATE
     Dosage: UNK
     Route: 065
  235. MAGNESIUM ASPARTATE\POTASSIUM ASPARTATE [Suspect]
     Active Substance: MAGNESIUM ASPARTATE\POTASSIUM ASPARTATE
     Dosage: UNK
     Route: 065
  236. MAGNESIUM ASPARTATE\POTASSIUM ASPARTATE [Suspect]
     Active Substance: MAGNESIUM ASPARTATE\POTASSIUM ASPARTATE
     Dosage: UNK UNK, UNKNOWN FREQ.
     Route: 065
  237. VITAMIN E [Suspect]
     Active Substance: .ALPHA.-TOCOPHEROL
     Dosage: 1 DF, Q2W
     Route: 065
  238. VITAMIN E [Suspect]
     Active Substance: .ALPHA.-TOCOPHEROL
     Dosage: 2000 IU, QW
     Route: 065
  239. VITAMIN E [Suspect]
     Active Substance: .ALPHA.-TOCOPHEROL
     Dosage: 2000 IU
     Route: 065
  240. VITAMIN E [Suspect]
     Active Substance: .ALPHA.-TOCOPHEROL
     Indication: Product used for unknown indication
     Dosage: UNK, Q2W
     Route: 065
  241. FLUTICASONE PROPIONATE\SALMETEROL XINAFOATE [Suspect]
     Active Substance: FLUTICASONE PROPIONATE\SALMETEROL XINAFOATE
     Indication: Chest discomfort
     Dosage: UNK
     Route: 065
  242. FLUTICASONE PROPIONATE\SALMETEROL XINAFOATE [Suspect]
     Active Substance: FLUTICASONE PROPIONATE\SALMETEROL XINAFOATE
     Indication: Cough
     Dosage: UNK
     Route: 065
  243. FLUTICASONE PROPIONATE\SALMETEROL XINAFOATE [Suspect]
     Active Substance: FLUTICASONE PROPIONATE\SALMETEROL XINAFOATE
     Indication: Dysphonia
     Dosage: UNK
     Route: 065
  244. FLUTICASONE PROPIONATE\SALMETEROL XINAFOATE [Suspect]
     Active Substance: FLUTICASONE PROPIONATE\SALMETEROL XINAFOATE
     Indication: Dyspnoea
     Dosage: UNK
     Route: 065
  245. FLUTICASONE PROPIONATE\SALMETEROL XINAFOATE [Suspect]
     Active Substance: FLUTICASONE PROPIONATE\SALMETEROL XINAFOATE
     Indication: Pneumothorax
     Dosage: UNK
     Route: 065
  246. FLUTICASONE PROPIONATE\SALMETEROL XINAFOATE [Suspect]
     Active Substance: FLUTICASONE PROPIONATE\SALMETEROL XINAFOATE
     Indication: Secretion discharge
     Dosage: UNK
     Route: 065
  247. FLUTICASONE PROPIONATE\SALMETEROL XINAFOATE [Suspect]
     Active Substance: FLUTICASONE PROPIONATE\SALMETEROL XINAFOATE
     Indication: Secretion discharge
     Dosage: UNK
     Route: 065
  248. FLUTICASONE PROPIONATE\SALMETEROL XINAFOATE [Suspect]
     Active Substance: FLUTICASONE PROPIONATE\SALMETEROL XINAFOATE
     Dosage: UNK
     Route: 065
  249. FLUTICASONE PROPIONATE\SALMETEROL XINAFOATE [Suspect]
     Active Substance: FLUTICASONE PROPIONATE\SALMETEROL XINAFOATE
     Dosage: UNK
     Route: 065
  250. FLUTICASONE PROPIONATE\SALMETEROL XINAFOATE [Suspect]
     Active Substance: FLUTICASONE PROPIONATE\SALMETEROL XINAFOATE
     Dosage: UNK
     Route: 065
  251. FLUTICASONE PROPIONATE\SALMETEROL XINAFOATE [Suspect]
     Active Substance: FLUTICASONE PROPIONATE\SALMETEROL XINAFOATE
     Indication: Nasopharyngitis
     Dosage: UNK UNK, UNKNOWN
     Route: 055
     Dates: start: 2018, end: 2018
  252. FLUTICASONE PROPIONATE\SALMETEROL XINAFOATE [Suspect]
     Active Substance: FLUTICASONE PROPIONATE\SALMETEROL XINAFOATE
     Dosage: UNK UNK, UNKNOWN
     Route: 065
  253. FLUTICASONE PROPIONATE\SALMETEROL XINAFOATE [Suspect]
     Active Substance: FLUTICASONE PROPIONATE\SALMETEROL XINAFOATE
     Dosage: UNK UNK, UNKNOWN
     Route: 065
  254. FLUTICASONE PROPIONATE\SALMETEROL XINAFOATE [Suspect]
     Active Substance: FLUTICASONE PROPIONATE\SALMETEROL XINAFOATE
     Dosage: UNK UNK, UNKNOWN
     Route: 065
  255. FLUTICASONE PROPIONATE\SALMETEROL XINAFOATE [Suspect]
     Active Substance: FLUTICASONE PROPIONATE\SALMETEROL XINAFOATE
     Dosage: UNK UNK, UNKNOWN
     Route: 065
  256. FLUTICASONE PROPIONATE\SALMETEROL XINAFOATE [Suspect]
     Active Substance: FLUTICASONE PROPIONATE\SALMETEROL XINAFOATE
     Dosage: UNK UNK, UNKNOWN
     Route: 065
  257. FLUTICASONE PROPIONATE\SALMETEROL XINAFOATE [Suspect]
     Active Substance: FLUTICASONE PROPIONATE\SALMETEROL XINAFOATE
     Dosage: UNK UNK, UNKNOWN
     Route: 065
  258. FLUTICASONE PROPIONATE\SALMETEROL XINAFOATE [Suspect]
     Active Substance: FLUTICASONE PROPIONATE\SALMETEROL XINAFOATE
     Dosage: UNK UNK, UNKNOWN
     Route: 065
  259. VITAMIN D [Suspect]
     Active Substance: VITAMIN D NOS
     Dosage: 2000 IU, QW
     Route: 065
  260. VITAMIN D [Suspect]
     Active Substance: VITAMIN D NOS
     Dosage: 2000 IU, QW
     Route: 065
  261. VITAMIN D [Suspect]
     Active Substance: VITAMIN D NOS
     Dosage: 20000 IU, QW
     Route: 065
  262. VITAMIN D [Suspect]
     Active Substance: VITAMIN D NOS
     Indication: Product used for unknown indication
     Dosage: UNK UNK, QW (20,000 I.E)
     Route: 065
  263. VITAMIN E [Suspect]
     Active Substance: .ALPHA.-TOCOPHEROL
     Dosage: 1 DOSAGE FORM, QW
     Route: 065
  264. VITAMIN E [Suspect]
     Active Substance: .ALPHA.-TOCOPHEROL
     Indication: Product used for unknown indication
     Dosage: 2000 IU, QW
     Route: 065
  265. VITAMIN E [Suspect]
     Active Substance: .ALPHA.-TOCOPHEROL
     Dosage: 20000 IU, QW
     Route: 065
  266. VOLTAREN [Suspect]
     Active Substance: DICLOFENAC SODIUM
     Indication: Product used for unknown indication
     Dosage: UNK, PRN
     Route: 065
  267. ACETIC ACID\DELTAMETHRIN [Suspect]
     Active Substance: ACETIC ACID\DELTAMETHRIN
     Dosage: 1000 IU, QD
     Route: 065
  268. ACETIC ACID\DELTAMETHRIN [Suspect]
     Active Substance: ACETIC ACID\DELTAMETHRIN
     Dosage: 2000 IU, QD(1000 INTERNATIONAL UNIT, BID )
     Route: 065
  269. ACETIC ACID\DELTAMETHRIN [Suspect]
     Active Substance: ACETIC ACID\DELTAMETHRIN
     Dosage: 500 IU, Q12H
     Route: 065
  270. ACETIC ACID\DELTAMETHRIN [Suspect]
     Active Substance: ACETIC ACID\DELTAMETHRIN
     Dosage: 1000 INTERNATIONAL UNIT, BID
     Route: 065
  271. ACETIC ACID\DELTAMETHRIN [Suspect]
     Active Substance: ACETIC ACID\DELTAMETHRIN
     Dosage: 1000 INTERNATIONAL UNIT, BID
     Route: 065
  272. ACETIC ACID\DELTAMETHRIN [Suspect]
     Active Substance: ACETIC ACID\DELTAMETHRIN
     Indication: Product used for unknown indication
     Dosage: 2000 INTERNATIONAL UNIT, BID
     Route: 065
  273. ACETIC ACID\DELTAMETHRIN [Suspect]
     Active Substance: ACETIC ACID\DELTAMETHRIN
     Dosage: 500 INTERNATIONAL UNIT, BID
     Route: 065
  274. ACETIC ACID\DELTAMETHRIN [Suspect]
     Active Substance: ACETIC ACID\DELTAMETHRIN
     Indication: Product used for unknown indication
     Dosage: UNK (STRENGTH: 10)
     Route: 065
  275. XARELTO [Suspect]
     Active Substance: RIVAROXABAN
     Indication: Product used for unknown indication
     Dosage: UNK
     Route: 065
  276. XARELTO [Suspect]
     Active Substance: RIVAROXABAN
     Indication: Product used for unknown indication
     Dosage: UNK
     Route: 065
  277. XARELTO [Suspect]
     Active Substance: RIVAROXABAN
     Dosage: UNK
     Route: 065
  278. XARELTO [Suspect]
     Active Substance: RIVAROXABAN
     Dosage: UNK
     Route: 065
  279. XARELTO [Suspect]
     Active Substance: RIVAROXABAN
     Dosage: UNK UNK, UNKNOWN FREQ.
     Route: 065
  280. AMBROXOL HYDROCHLORIDE [Concomitant]
     Active Substance: AMBROXOL HYDROCHLORIDE
     Indication: Product used for unknown indication
     Dosage: UNK
     Route: 065
  281. AMBROXOL HYDROCHLORIDE [Concomitant]
     Active Substance: AMBROXOL HYDROCHLORIDE
     Dosage: UNK
     Route: 065
  282. AMBROXOL HYDROCHLORIDE [Concomitant]
     Active Substance: AMBROXOL HYDROCHLORIDE
     Dosage: UNK
     Route: 065
  283. AMBROXOL HYDROCHLORIDE [Concomitant]
     Active Substance: AMBROXOL HYDROCHLORIDE
     Dosage: UNK
     Route: 065
  284. AMBROXOL HYDROCHLORIDE [Concomitant]
     Active Substance: AMBROXOL HYDROCHLORIDE
     Indication: Product used for unknown indication
     Dosage: UNK UNK, UNKNOWN FREQ.
     Route: 065
  285. ASPIRIN [Concomitant]
     Active Substance: ASPIRIN
     Dosage: UNK (STRENGTH: 100)
     Route: 065
  286. ASPIRIN [Concomitant]
     Active Substance: ASPIRIN
     Indication: Product used for unknown indication
     Dosage: UNK UNK, UNKNOWN (STRENGTH: 100)
     Route: 065
  287. CALCIUM [Concomitant]
     Active Substance: CALCIUM
     Indication: Product used for unknown indication
     Dosage: 500 MG, BID
     Route: 065
  288. CALCIUM CARBONATE [Concomitant]
     Active Substance: CALCIUM CARBONATE
     Indication: Product used for unknown indication
     Dosage: UNK UNK, UNKNOWN FREQ.
     Route: 065
  289. CALCIUM CARBONATE\CALCIUM LACTATE GLUCONATE [Concomitant]
     Active Substance: CALCIUM CARBONATE\CALCIUM LACTATE GLUCONATE
     Dosage: 1000 MG
     Route: 065
  290. CALCIUM CARBONATE\CALCIUM LACTATE GLUCONATE [Concomitant]
     Active Substance: CALCIUM CARBONATE\CALCIUM LACTATE GLUCONATE
     Indication: Product used for unknown indication
     Dosage: 500 MG, QD
     Route: 065
  291. CIALIS [Concomitant]
     Active Substance: TADALAFIL
     Indication: Product used for unknown indication
     Dosage: UNK
     Route: 065
  292. CLOPIDOGREL [Concomitant]
     Active Substance: CLOPIDOGREL BISULFATE
     Indication: Product used for unknown indication
     Dosage: UNK, QD
     Route: 065
     Dates: start: 20201210
  293. DICLOFENAC [Concomitant]
     Active Substance: DICLOFENAC
     Indication: Product used for unknown indication
     Dosage: UNK
     Route: 065
  294. MOMETASONE [Concomitant]
     Active Substance: MOMETASONE
     Indication: Product used for unknown indication
     Dosage: UNK, PRN
     Route: 065
  295. EVOLOCUMAB [Concomitant]
     Active Substance: EVOLOCUMAB
     Indication: Product used for unknown indication
     Dosage: UNK
     Route: 065
  296. EVOLOCUMAB [Concomitant]
     Active Substance: EVOLOCUMAB
     Dosage: UNK UNK, UNKNOWN FREQ.
     Route: 065
  297. EVOLOCUMAB [Concomitant]
     Active Substance: EVOLOCUMAB
     Dosage: UNK, EVERY 3 WEEKS (Q3W)
     Route: 065
  298. EVOLOCUMAB [Concomitant]
     Active Substance: EVOLOCUMAB
     Indication: Product used for unknown indication
     Dosage: UNK, EVERY THREE WEEKS
     Route: 065
  299. IBUPROFEN [Concomitant]
     Active Substance: IBUPROFEN
     Indication: Product used for unknown indication
     Dosage: UNK, PRN
     Route: 065
  300. MAGNESIUM ASPARTATE;PROCAINE HYDROCHLORIDE [Concomitant]
     Indication: Product used for unknown indication
     Dosage: UNK
     Route: 065
  301. MOMETASONE FUROATE [Concomitant]
     Active Substance: MOMETASONE FUROATE
     Dosage: UNK UNK, UNKNOWN FREQ.
     Route: 065
  302. MOMETASONE FUROATE [Concomitant]
     Active Substance: MOMETASONE FUROATE
     Dosage: 2 PUFFS BID
     Route: 065
  303. MOMETASONE FUROATE [Concomitant]
     Active Substance: MOMETASONE FUROATE
     Dosage: UNK
     Route: 065
  304. MOMETASONE FUROATE [Concomitant]
     Active Substance: MOMETASONE FUROATE
     Indication: Product used for unknown indication
     Dosage: UNK
     Route: 065
  305. MOMETASONE FUROATE [Concomitant]
     Active Substance: MOMETASONE FUROATE
     Dosage: UNK UNK, EVERY 12 HOURS
     Route: 065
  306. MOMETASONE FUROATE [Concomitant]
     Active Substance: MOMETASONE FUROATE
     Dosage: UNK UNK, UNKNOWN
     Route: 065
  307. MOMETASONE FUROATE [Concomitant]
     Active Substance: MOMETASONE FUROATE
     Indication: Product used for unknown indication
     Dosage: UNK UNK, UNKNOWN FREQ.
     Route: 065
  308. MOMETASONE FUROATE [Concomitant]
     Active Substance: MOMETASONE FUROATE
     Dosage: UNK UNK, UNKNOWN FREQ.
     Route: 065
  309. PREDNISOLONE [Concomitant]
     Active Substance: PREDNISOLONE
     Dosage: UNK (OTHER FOR 6 DAYS), ROUTE: UNKNOWN
     Route: 065
  310. PREDNISOLONE [Concomitant]
     Active Substance: PREDNISOLONE
     Dosage: UNK UNK, OTHER (FOR 6 DAYS)
     Route: 065
  311. PREDNISOLONE [Concomitant]
     Active Substance: PREDNISOLONE
     Dosage: UNK UNK, OTHER FOR 6 DAYS
     Route: 065
  312. PREDNISOLONE [Concomitant]
     Active Substance: PREDNISOLONE
     Dosage: UNK, (FOR 6 DAYS)
     Route: 065
  313. PREDNISOLONE [Concomitant]
     Active Substance: PREDNISOLONE
     Indication: Product used for unknown indication
     Dosage: FOR 6 DAYS
     Route: 065
  314. PREDNISOLONE [Concomitant]
     Active Substance: PREDNISOLONE
     Indication: Product used for unknown indication
     Dosage: FOR 6 DAYS
     Route: 065
  315. PREDNISOLONE [Concomitant]
     Active Substance: PREDNISOLONE
     Dosage: FOR 6 DAYS
     Route: 065
  316. PREDNISOLONE [Concomitant]
     Active Substance: PREDNISOLONE
     Dosage: FOR 6 DAYS
     Route: 065
  317. REPATHA [Concomitant]
     Active Substance: EVOLOCUMAB
     Dosage: 1 DF, QW
     Route: 065
  318. REPATHA [Concomitant]
     Active Substance: EVOLOCUMAB
     Dosage: 1 DOSAGE FORM, QW
     Route: 065
  319. REPATHA [Concomitant]
     Active Substance: EVOLOCUMAB
     Dosage: UNK, QW
     Route: 065
  320. REPATHA [Concomitant]
     Active Substance: EVOLOCUMAB
     Indication: Product used for unknown indication
     Dosage: UNK, Q3W
     Route: 065
  321. REPATHA [Concomitant]
     Active Substance: EVOLOCUMAB
     Dosage: UNK, Q3W
     Route: 065
  322. REPATHA [Concomitant]
     Active Substance: EVOLOCUMAB
     Dosage: 1 DOSAGE FORM (IN 56 HOUR)
     Route: 065
  323. REPATHA [Concomitant]
     Active Substance: EVOLOCUMAB
     Dosage: 1 DOSAGE FORM, QW
     Route: 065
  324. REPATHA [Concomitant]
     Active Substance: EVOLOCUMAB
     Dosage: UNK, QW
     Route: 065
  325. REPATHA [Concomitant]
     Active Substance: EVOLOCUMAB
     Dosage: UNK, QW
     Route: 065
  326. REPATHA [Concomitant]
     Active Substance: EVOLOCUMAB
     Dosage: UNK, Q3W
     Route: 065
  327. GINKGO [Concomitant]
     Active Substance: GINKGO
     Indication: Product used for unknown indication
     Dosage: UNK
     Route: 065
  328. VOLTAREN [Concomitant]
     Active Substance: DICLOFENAC SODIUM
     Indication: Product used for unknown indication
     Dosage: UNK, PRN
     Route: 065
  329. Votum [Concomitant]
     Indication: Product used for unknown indication
     Dosage: UNK
     Route: 065

REACTIONS (38)
  - Obstructive airways disorder [Unknown]
  - Dysphonia [Not Recovered/Not Resolved]
  - Dyspnoea [Unknown]
  - Obstructive airways disorder [Unknown]
  - Coronary artery disease [Unknown]
  - Obstructive sleep apnoea syndrome [Unknown]
  - Plantar fasciitis [Unknown]
  - Chest discomfort [Not Recovered/Not Resolved]
  - Secretion discharge [Unknown]
  - Dyspnoea exertional [Unknown]
  - Cardiac disorder [Unknown]
  - Eosinophilia [Unknown]
  - Muscle spasms [Unknown]
  - Wheezing [Unknown]
  - Fractional exhaled nitric oxide increased [Unknown]
  - Myoglobin blood increased [Unknown]
  - Nasopharyngitis [Unknown]
  - Brain natriuretic peptide increased [Unknown]
  - Sensation of foreign body [Unknown]
  - Exostosis [Unknown]
  - Pneumothorax [Not Recovered/Not Resolved]
  - Cough [Not Recovered/Not Resolved]
  - Muscle spasms [Unknown]
  - Muscle spasms [Unknown]
  - Muscle spasms [Unknown]
  - Wheezing [Unknown]
  - Brain natriuretic peptide increased [Unknown]
  - Nasopharyngitis [Unknown]
  - Secretion discharge [Unknown]
  - Coronary artery disease [Unknown]
  - Sensation of foreign body [Unknown]
  - Plantar fasciitis [Unknown]
  - Atrial fibrillation [Recovered/Resolved]
  - Cough [Not Recovered/Not Resolved]
  - Obstructive airways disorder [Unknown]
  - Increased upper airway secretion [Unknown]
  - Myoglobin blood increased [Unknown]
  - Foreign body in throat [Unknown]

NARRATIVE: CASE EVENT DATE: 20200320
